FAERS Safety Report 12177640 (Version 12)
Quarter: 2019Q4

REPORT INFORMATION
  Report Type: Report from Study
  Country: US (occurrence: US)
  Receive Date: 20160315
  Receipt Date: 20191106
  Transmission Date: 20200122
  Serious: Yes (Other)
  Sender: FDA-Public Use
  Company Number: PHHY2014US159835

PATIENT
  Age: 58 Year
  Sex: Female

DRUGS (15)
  1. TRAMADOL. [Concomitant]
     Active Substance: TRAMADOL
     Indication: PAIN
     Dosage: UNK
     Route: 065
     Dates: start: 20140820, end: 20150619
  2. VITAMIN E [Concomitant]
     Active Substance: .ALPHA.-TOCOPHEROL
     Indication: GENERAL PHYSICAL CONDITION
     Route: 065
     Dates: start: 20140820, end: 20141120
  3. TRAMADOL. [Concomitant]
     Active Substance: TRAMADOL
     Dosage: UNK
     Route: 065
     Dates: start: 20151111
  4. MAGNESIUM HYDROXIDE. [Concomitant]
     Active Substance: MAGNESIUM HYDROXIDE
     Indication: CONSTIPATION
     Dosage: UNK
     Route: 065
     Dates: start: 20141120, end: 20151106
  5. VITAMIN C [Concomitant]
     Active Substance: ASCORBIC ACID
     Indication: GENERAL PHYSICAL CONDITION
     Dosage: UNK
     Route: 065
     Dates: start: 20140820, end: 20150611
  6. SENNA [Concomitant]
     Active Substance: SENNA LEAF\SENNOSIDES\SENNOSIDES A AND B
     Indication: CONSTIPATION
     Route: 065
     Dates: start: 20140820, end: 20141120
  7. ALPHA LIPOIC ACID [Concomitant]
     Active Substance: .ALPHA.-LIPOIC ACID
     Indication: GENERAL PHYSICAL CONDITION
     Dosage: UNK
     Route: 065
     Dates: start: 20150513
  8. MULTI VITAMIN [Concomitant]
     Active Substance: VITAMINS
     Indication: GENERAL PHYSICAL CONDITION
     Dosage: UNK
     Route: 065
     Dates: start: 20150513, end: 20160701
  9. FINACEA [Concomitant]
     Active Substance: AZELAIC ACID
     Indication: ROSACEA
     Dosage: UNK
     Route: 065
     Dates: start: 20151106, end: 20160406
  10. ESTRACE [Concomitant]
     Active Substance: ESTRADIOL
     Indication: GENERAL PHYSICAL CONDITION
     Dosage: UNK
     Route: 065
     Dates: start: 20150312, end: 20150821
  11. GILENYA [Suspect]
     Active Substance: FINGOLIMOD HYDROCHLORIDE
     Indication: MULTIPLE SCLEROSIS
     Dosage: UNK UNK, QD
     Route: 048
  12. MILNACIPRAN [Concomitant]
     Active Substance: MILNACIPRAN
     Indication: FIBROMYALGIA
     Route: 065
     Dates: start: 20140820, end: 20141120
  13. POTASSIUM CITRATE. [Concomitant]
     Active Substance: POTASSIUM CITRATE
     Indication: GENERAL PHYSICAL CONDITION
     Dosage: UNK
     Route: 065
     Dates: start: 20150513, end: 20150611
  14. CALCIO + MAGNESIO WITH VIT D [Concomitant]
     Indication: GENERAL PHYSICAL CONDITION
     Dosage: UNK
     Route: 065
     Dates: start: 20150513
  15. OREGAN [Concomitant]
     Active Substance: DEXAMETHASONE\NEOMYCIN SULFATE\POLYMYXIN B SULFATE
     Indication: GENERAL PHYSICAL CONDITION
     Dosage: UNK
     Route: 065
     Dates: start: 20150513, end: 20150611

REACTIONS (27)
  - Chest discomfort [Recovered/Resolved]
  - Blood alkaline phosphatase increased [Unknown]
  - Blood glucose increased [Unknown]
  - Blood triglycerides increased [Recovered/Resolved]
  - Pyrexia [Recovered/Resolved]
  - Electrocardiogram abnormal [Unknown]
  - Depressed level of consciousness [Recovered/Resolved]
  - Dehydration [Recovered/Resolved]
  - Chest discomfort [Recovered/Resolved]
  - Low density lipoprotein increased [Unknown]
  - Depressed level of consciousness [Recovered/Resolved]
  - Diarrhoea [Recovered/Resolved]
  - Chest pain [Recovered/Resolved]
  - Peripheral swelling [Recovered/Resolved]
  - Pain in extremity [Unknown]
  - Neurogenic bladder [Recovered/Resolved]
  - Headache [Recovered/Resolved]
  - Nausea [Recovered/Resolved]
  - Anxiety [Recovered/Resolved]
  - Vertigo [Recovered/Resolved]
  - Depression [Recovered/Resolved]
  - Fall [Recovered/Resolved]
  - Sinusitis [Unknown]
  - Dysphagia [Recovered/Resolved]
  - Headache [Recovered/Resolved]
  - Chest discomfort [Unknown]
  - Muscle tightness [Recovered/Resolved]

NARRATIVE: CASE EVENT DATE: 20140813
